FAERS Safety Report 5190210-0 (Version None)
Quarter: 2006Q4

REPORT INFORMATION
  Report Type: 
  Country: None (occurrence: None)
  Receive Date: 20061222
  Receipt Date: 20061026
  Transmission Date: 20070319
  Serious: No
  Sender: FDA-Public Use
  Company Number: US-AMGEN-US200161

PATIENT
  Sex: Female

DRUGS (5)
  1. ARANESP [Suspect]
     Indication: ANAEMIA
     Dates: start: 20060101, end: 20061001
  2. PROCRIT [Concomitant]
     Dates: start: 20050101
  3. ACTOS [Concomitant]
  4. PRINZIDE [Concomitant]
  5. FOLIC ACID [Concomitant]

REACTIONS (1)
  - FATIGUE [None]
